FAERS Safety Report 16898439 (Version 1)
Quarter: 2019Q4

REPORT INFORMATION
  Report Type: Report from Study
  Country: US (occurrence: US)
  Receive Date: 20191009
  Receipt Date: 20191009
  Transmission Date: 20200122
  Serious: Yes (Other)
  Sender: FDA-Public Use
  Company Number: US-PFIZER INC-2019286552

PATIENT
  Age: 85 Year
  Sex: Female

DRUGS (4)
  1. IBRANCE [Suspect]
     Active Substance: PALBOCICLIB
     Dosage: 75 MG, CYCLIC (EVERY OTHER DAY, 21 DAYS ON,7 DAYS OFF)
     Route: 048
     Dates: start: 20190913
  2. IBRANCE [Suspect]
     Active Substance: PALBOCICLIB
     Indication: BREAST CANCER METASTATIC
     Dosage: 125 MG, CYCLIC (CYCLE IS 21 DAYS ON, 7 DAYS OFF)
     Route: 048
     Dates: start: 20190423, end: 2019
  3. IBRANCE [Suspect]
     Active Substance: PALBOCICLIB
     Dosage: 100 MG, CYCLIC (CYCLE IS ONCE DAILY 21 DAYS ON, 7 DAYS OFF)
     Route: 048
     Dates: start: 201905, end: 2019
  4. IBRANCE [Suspect]
     Active Substance: PALBOCICLIB
     Dosage: 75 MG, CYCLIC (CYCLE IS 21 DAYS ON, 7 DAYS OFF)
     Route: 048
     Dates: start: 201906

REACTIONS (18)
  - Leukopenia [Unknown]
  - Diarrhoea [Unknown]
  - Pain in extremity [Unknown]
  - Condition aggravated [Unknown]
  - Cough [Unknown]
  - Nervousness [Unknown]
  - Somnolence [Unknown]
  - Headache [Unknown]
  - Oral pain [Unknown]
  - Gait disturbance [Unknown]
  - Ear infection [Unknown]
  - Constipation [Unknown]
  - Bone marrow failure [Unknown]
  - Decreased appetite [Unknown]
  - Fatigue [Unknown]
  - Anaemia [Unknown]
  - Throat irritation [Unknown]
  - Insomnia [Unknown]

NARRATIVE: CASE EVENT DATE: 2019
